FAERS Safety Report 20367453 (Version 1)
Quarter: 2022Q1

REPORT INFORMATION
  Report Type: Report from Study
  Country: US (occurrence: US)
  Receive Date: 20220124
  Receipt Date: 20220124
  Transmission Date: 20220424
  Serious: No
  Sender: FDA-Public Use
  Company Number: US-BIOVITRUM-2022US00718

PATIENT
  Age: 38 Year
  Sex: Female

DRUGS (1)
  1. KINERET [Suspect]
     Active Substance: ANAKINRA
     Indication: Monoclonal gammopathy
     Route: 058
     Dates: start: 20211222

REACTIONS (6)
  - Pharyngitis streptococcal [Unknown]
  - Pyrexia [Unknown]
  - Injection site irritation [Unknown]
  - Injection site pain [Unknown]
  - Urticaria [Unknown]
  - Off label use [Not Recovered/Not Resolved]

NARRATIVE: CASE EVENT DATE: 20211222
